FAERS Safety Report 13595254 (Version 2)
Quarter: 2017Q3

REPORT INFORMATION
  Report Type: Spontaneous
  Country: JP (occurrence: JP)
  Receive Date: 20170531
  Receipt Date: 20170707
  Transmission Date: 20171127
  Serious: Yes (Hospitalization)
  Sender: FDA-Public Use
  Company Number: JP-009507513-1705JPN002789J

PATIENT
  Age: 75 Year
  Sex: Female
  Weight: 48 kg

DRUGS (6)
  1. ERELSA TABLETS 50MG [Suspect]
     Active Substance: ELBASVIR
     Indication: HEPATIC CIRRHOSIS
     Dosage: 50 MG, QD
     Route: 048
     Dates: start: 20170328, end: 20170523
  2. KOLANTYL [Concomitant]
     Active Substance: DICYCLOMINE HYDROCHLORIDE
     Indication: GASTRITIS
     Dosage: 1 G, TID
     Route: 048
  3. TAURINE [Concomitant]
     Active Substance: TAURINE
     Indication: HEPATIC CIRRHOSIS
     Dosage: 1 G, TID
     Route: 048
  4. GRAZYNA TABLETS 50MG [Suspect]
     Active Substance: GRAZOPREVIR
     Indication: HEPATIC CIRRHOSIS
     Dosage: 100 MG, QD
     Route: 048
     Dates: start: 20170328, end: 20170523
  5. BERIZYM [Concomitant]
     Active Substance: CELLULASE\DIASTASE\LIPASE
     Indication: GASTRITIS
     Dosage: 0.5 G, TID
     Route: 048
  6. LOXOPROFEN [Concomitant]
     Active Substance: LOXOPROFEN
     Indication: HEADACHE
     Dosage: 60 MG, PRN
     Route: 048
     Dates: start: 20170411

REACTIONS (1)
  - Hepatic function abnormal [Recovering/Resolving]

NARRATIVE: CASE EVENT DATE: 20170515
